FAERS Safety Report 6554865-8 (Version None)
Quarter: 2010Q1

REPORT INFORMATION
  Report Type: 
  Country: None (occurrence: None)
  Receive Date: 20100127
  Receipt Date: 20091112
  Transmission Date: 20100710
  Serious: Yes (Hospitalization, Other)
  Sender: FDA-Public Use
  Company Number: GB-MERCK-0910GBR00084

PATIENT
  Age: 50 Year
  Sex: Female

DRUGS (7)
  1. ZOCOR [Suspect]
     Route: 048
  2. ATENOLOL [Suspect]
     Route: 048
  3. MYOCRISIN [Suspect]
     Route: 030
     Dates: start: 20080924, end: 20080924
  4. RAMIPRIL [Suspect]
     Route: 048
  5. CODEINE PHOSPHATE [Concomitant]
     Route: 048
  6. LANSOPRAZOLE [Concomitant]
     Route: 048
  7. PREDNISOLONE [Concomitant]
     Route: 048

REACTIONS (17)
  - ALANINE AMINOTRANSFERASE INCREASED [None]
  - ASTHENIA [None]
  - BLOOD PRESSURE DECREASED [None]
  - BURNING SENSATION [None]
  - C-REACTIVE PROTEIN INCREASED [None]
  - DIARRHOEA [None]
  - DRUG INTERACTION [None]
  - GLOMERULAR FILTRATION RATE DECREASED [None]
  - HEADACHE [None]
  - MUSCULOSKELETAL STIFFNESS [None]
  - NAUSEA [None]
  - PLATELET COUNT DECREASED [None]
  - RASH [None]
  - RENAL FAILURE [None]
  - SHOCK [None]
  - SYNCOPE [None]
  - VOMITING [None]
